FAERS Safety Report 16043111 (Version 2)
Quarter: 2019Q1

REPORT INFORMATION
  Report Type: Spontaneous
  Country: US (occurrence: US)
  Receive Date: 20190306
  Receipt Date: 20190325
  Transmission Date: 20190418
  Serious: Yes (Other)
  Sender: FDA-Public Use
  Company Number: US-NATCO PHARMA-2019NAT00015

PATIENT
  Sex: Female

DRUGS (3)
  1. OSELTAMIVIR PHOSPHATE. [Suspect]
     Active Substance: OSELTAMIVIR PHOSPHATE
     Indication: INFLUENZA
     Dosage: UNK
  2. LEXAPRO [Concomitant]
     Active Substance: ESCITALOPRAM OXALATE
  3. METFORMIN [Concomitant]
     Active Substance: METFORMIN HYDROCHLORIDE

REACTIONS (4)
  - Tongue blistering [Recovered/Resolved]
  - Pancreatitis [Recovering/Resolving]
  - Cough [Recovered/Resolved]
  - Diarrhoea [Recovered/Resolved]
